FAERS Safety Report 12989681 (Version 2)
Quarter: 2016Q4

REPORT INFORMATION
  Report Type: Spontaneous
  Country: GB (occurrence: GB)
  Receive Date: 20161201
  Receipt Date: 20161201
  Transmission Date: 20170207
  Serious: Yes (Other)
  Sender: FDA-Public Use
  Company Number: GB-CIPLA LTD.-2016GB22608

PATIENT

DRUGS (7)
  1. AMLODIPINE [Suspect]
     Active Substance: AMLODIPINE BESYLATE
     Dosage: UNK
     Route: 065
     Dates: start: 20161107
  2. AMOROLFINE [Concomitant]
     Active Substance: AMOROLFINE
     Dosage: ONE OR TWICE WEEKLY
     Route: 065
     Dates: start: 20160928, end: 20160929
  3. FLOMAXTRA XL [Concomitant]
     Active Substance: TAMSULOSIN HYDROCHLORIDE
     Dosage: 1 DF, QD
     Route: 065
     Dates: start: 20141014
  4. RAMIPRIL. [Concomitant]
     Active Substance: RAMIPRIL
     Dosage: 1 DF, QD
     Route: 065
     Dates: start: 20141014
  5. BENDROFLUMETHIAZIDE [Concomitant]
     Active Substance: BENDROFLUMETHIAZIDE
     Dosage: 1 DF, QD, EACH MORNING
     Route: 065
     Dates: start: 20161107
  6. SPIRONOLACTONE. [Concomitant]
     Active Substance: SPIRONOLACTONE
     Dosage: 1 DF, QD
     Route: 065
     Dates: start: 20141014, end: 20160809
  7. PROSCAR [Concomitant]
     Active Substance: FINASTERIDE
     Dosage: 1 DF, QD
     Route: 065
     Dates: start: 20141014

REACTIONS (3)
  - Malaise [Unknown]
  - Hallucination [Recovered/Resolved]
  - Skin tightness [Unknown]

NARRATIVE: CASE EVENT DATE: 20161107
